FAERS Safety Report 19689630 (Version 1)
Quarter: 2021Q3

REPORT INFORMATION
  Report Type: Spontaneous
  Country: IN (occurrence: IN)
  Receive Date: 20210812
  Receipt Date: 20210812
  Transmission Date: 20211014
  Serious: Yes (Life-Threatening, Other)
  Sender: FDA-Public Use
  Company Number: IN-STRIDES ARCOLAB LIMITED-2021SP026254

PATIENT
  Age: 35 Year
  Sex: Male

DRUGS (18)
  1. DEXAMETHASONE. [Suspect]
     Active Substance: DEXAMETHASONE
     Indication: TYPE 2 LEPRA REACTION
     Dosage: UNK, GRADUALLY TAPERED BASED ON CLINICAL IMPROVEMENT, INJECTABLE
     Route: 065
  2. THALIDOMIDE [Suspect]
     Active Substance: THALIDOMIDE
     Indication: NEURITIS
     Dosage: 100 MILLIGRAM, EVERY 8 HRS
     Route: 065
  3. PREDNISOLONE. [Suspect]
     Active Substance: PREDNISOLONE
     Indication: NEURITIS
     Dosage: 40 MILLIGRAM PER DAY (HAD TO BE REPEATEDLY ALTERED
     Route: 065
  4. PREDNISOLONE. [Suspect]
     Active Substance: PREDNISOLONE
     Indication: LEPROMATOUS LEPROSY
     Dosage: 60 MILLIGRAM PER DAY, WEEK 0, TAPERED BY 5 MG EVERY WEEK
     Route: 065
  5. PREDNISOLONE. [Suspect]
     Active Substance: PREDNISOLONE
     Dosage: 10 MILLIGRAM PER DAY, WEEK 10 TABLET
     Route: 065
  6. DEXAMETHASONE. [Suspect]
     Active Substance: DEXAMETHASONE
     Indication: LEPROMATOUS LEPROSY
     Dosage: 8 MILLIGRAM, INJECTABLE
     Route: 065
  7. PREDNISOLONE. [Suspect]
     Active Substance: PREDNISOLONE
     Dosage: 35 MILLIGRAM PER DAY, WEEK 5 TABLET
     Route: 065
  8. DEXAMETHASONE. [Suspect]
     Active Substance: DEXAMETHASONE
     Indication: NEURITIS
  9. PREDNISOLONE. [Suspect]
     Active Substance: PREDNISOLONE
     Dosage: 40 MILLIGRAM PER DAY, WEEK 4 TABLET
     Route: 065
  10. PREDNISOLONE. [Suspect]
     Active Substance: PREDNISOLONE
     Dosage: 15 MILLIGRAM PER DAY, WEEK 9 TABLET
     Route: 065
  11. THALIDOMIDE [Suspect]
     Active Substance: THALIDOMIDE
     Indication: LEPROMATOUS LEPROSY
  12. PREDNISOLONE. [Suspect]
     Active Substance: PREDNISOLONE
     Dosage: 25 MILLIGRAM, PER DAY WEEK 7 TABLET
     Route: 065
  13. THALIDOMIDE [Suspect]
     Active Substance: THALIDOMIDE
     Indication: TYPE 2 LEPRA REACTION
     Dosage: 100 MILLIGRAM, BID
     Route: 065
  14. PREDNISOLONE. [Suspect]
     Active Substance: PREDNISOLONE
     Dosage: 45 MILLIGRAM PER DAY, WEEK 3 TABLET
     Route: 065
  15. PREDNISOLONE. [Suspect]
     Active Substance: PREDNISOLONE
     Dosage: 20 MILLIGRAM, PER DAY TABLET WEEK 8
     Route: 065
  16. PREDNISOLONE. [Suspect]
     Active Substance: PREDNISOLONE
     Indication: TYPE 2 LEPRA REACTION
     Dosage: 55 MILLIGRAM PER DAY, WEEK 1 TABLET
     Route: 065
  17. PREDNISOLONE. [Suspect]
     Active Substance: PREDNISOLONE
     Dosage: 50 MILLIGRAM PER DAY, WEEK 2 TABLET
     Route: 065
  18. PREDNISOLONE. [Suspect]
     Active Substance: PREDNISOLONE
     Dosage: 30 MILLIGRAM PER DAY, WEEK 6 TABLET
     Route: 065

REACTIONS (2)
  - Deep vein thrombosis [Unknown]
  - Leukocytosis [Unknown]
